FAERS Safety Report 10190587 (Version 2)
Quarter: 2014Q2

REPORT INFORMATION
  Report Type: Spontaneous
  Country: US (occurrence: US)
  Receive Date: 20140523
  Receipt Date: 20140623
  Transmission Date: 20141212
  Serious: No
  Sender: FDA-Public Use
  Company Number: US-B.I. PHARMACEUTICALS,INC./RIDGEFIELD-2014-BI-21043BP

PATIENT
  Age: 87 Year
  Sex: Female
  Weight: 64 kg

DRUGS (8)
  1. SPIRIVA [Suspect]
     Indication: CHRONIC OBSTRUCTIVE PULMONARY DISEASE
     Dosage: 18 MCG
     Route: 055
     Dates: start: 201403
  2. IPRATROPIUM BROMIDE AND ALBUTEROL NEBULIZER [Concomitant]
     Indication: CHRONIC OBSTRUCTIVE PULMONARY DISEASE
     Route: 055
  3. FUROSEMIDE [Concomitant]
     Dosage: 20 MG
     Route: 048
  4. LLISINOPRIL [Concomitant]
     Indication: HYPERTENSION
     Dosage: 0.1 MG
     Route: 048
  5. DILTIAZEM [Concomitant]
     Dosage: 240 MG
     Route: 048
  6. WARFARIN [Concomitant]
     Indication: CARDIAC ASSISTANCE DEVICE USER
     Dosage: 7.5 MG
     Route: 048
  7. CALCIUM [Concomitant]
     Indication: OSTEOPOROSIS
     Dosage: 1 ANZ
     Route: 048
  8. VITAMIN D3 [Concomitant]
     Indication: OSTEOPOROSIS
     Dosage: 2000 U
     Route: 048

REACTIONS (6)
  - Nervousness [Not Recovered/Not Resolved]
  - Dizziness [Not Recovered/Not Resolved]
  - Asthenia [Not Recovered/Not Resolved]
  - Feeling abnormal [Not Recovered/Not Resolved]
  - Product quality issue [Not Recovered/Not Resolved]
  - Product quality issue [Not Recovered/Not Resolved]
